FAERS Safety Report 8270245-1 (Version None)
Quarter: 2012Q1

REPORT INFORMATION
  Report Type: 
  Country: None (occurrence: None)
  Receive Date: 20120327
  Receipt Date: 20100312
  Transmission Date: 20120608
  Serious: Yes (Hospitalization)
  Sender: FDA-Public Use
  Company Number: PHHY2010US06828

PATIENT
  Age: 77 Year
  Sex: Male

DRUGS (1)
  1. GLEEVEC [Suspect]
     Dosage: 400 MG DAILY, ORAL
     Route: 048
     Dates: start: 20091112, end: 20100202

REACTIONS (3)
  - PERICARDIAL EFFUSION [None]
  - OEDEMA [None]
  - PULMONARY OEDEMA [None]
